FAERS Safety Report 18995990 (Version 1)
Quarter: 2021Q1

REPORT INFORMATION
  Report Type: Spontaneous
  Country: GR (occurrence: GR)
  Receive Date: 20210311
  Receipt Date: 20210311
  Transmission Date: 20210420
  Serious: Yes (Other)
  Sender: FDA-Public Use
  Company Number: GR-ROCHE-2786299

PATIENT
  Age: 57 Year
  Sex: Male

DRUGS (1)
  1. XOLAIR [Suspect]
     Active Substance: OMALIZUMAB
     Indication: CHRONIC SPONTANEOUS URTICARIA
     Route: 065
     Dates: start: 20201120, end: 20210220

REACTIONS (3)
  - Conjunctivitis [Not Recovered/Not Resolved]
  - Foreign body in eye [Not Recovered/Not Resolved]
  - Eczema [Not Recovered/Not Resolved]
